FAERS Safety Report 25131392 (Version 1)
Quarter: 2025Q1

REPORT INFORMATION
  Report Type: Spontaneous
  Country: AU (occurrence: AU)
  Receive Date: 20250327
  Receipt Date: 20250327
  Transmission Date: 20250409
  Serious: Yes (Life-Threatening, Other)
  Sender: ELI LILLY AND COMPANY
  Company Number: AU-ELI_LILLY_AND_COMPANY-AU202503016401

PATIENT
  Age: 62 Year
  Sex: Male

DRUGS (7)
  1. BARICITINIB [Suspect]
     Active Substance: BARICITINIB
     Indication: COVID-19 pneumonia
     Route: 065
  2. DEXAMETHASONE [Suspect]
     Active Substance: DEXAMETHASONE
     Indication: COVID-19 pneumonia
     Route: 065
  3. REMDESIVIR [Suspect]
     Active Substance: REMDESIVIR
     Indication: COVID-19 pneumonia
     Route: 065
  4. VORICONAZOLE [Suspect]
     Active Substance: VORICONAZOLE
     Indication: COVID-19
     Dosage: 300 MG, BID
     Route: 048
  5. VORICONAZOLE [Suspect]
     Active Substance: VORICONAZOLE
     Indication: Bronchopulmonary aspergillosis
  6. ANIDULAFUNGIN [Concomitant]
     Active Substance: ANIDULAFUNGIN
     Indication: COVID-19
     Route: 065
  7. ANIDULAFUNGIN [Concomitant]
     Active Substance: ANIDULAFUNGIN
     Indication: Bronchopulmonary aspergillosis

REACTIONS (10)
  - Pneumonia [Unknown]
  - Staphylococcal sepsis [Unknown]
  - Pneumomediastinum [Unknown]
  - Bronchopulmonary aspergillosis [Unknown]
  - Intensive care unit acquired weakness [Unknown]
  - Enthesopathy [Recovered/Resolved]
  - Arthritis [Recovered/Resolved]
  - Periostitis [Recovered/Resolved]
  - Deep vein thrombosis [Unknown]
  - Off label use [Unknown]
